FAERS Safety Report 5466873-9 (Version None)
Quarter: 2007Q3

REPORT INFORMATION
  Report Type: 
  Country: None (occurrence: None)
  Receive Date: 20070920
  Receipt Date: 20070905
  Transmission Date: 20080115
  Serious: Yes (Hospitalization, Other)
  Sender: FDA-Public Use
  Company Number: S07-UKI-05054-01

PATIENT
  Age: 22 Year
  Sex: Female

DRUGS (1)
  1. ESCITALOPRAM [Suspect]
     Indication: DEPRESSION
     Dosage: 20 MG QD; PO
     Route: 048
     Dates: start: 20070401

REACTIONS (5)
  - ALCOHOL POISONING [None]
  - FOOT FRACTURE [None]
  - GRAND MAL CONVULSION [None]
  - LEGAL PROBLEM [None]
  - PETIT MAL EPILEPSY [None]
